FAERS Safety Report 25159631 (Version 2)
Quarter: 2025Q2

REPORT INFORMATION
  Report Type: Spontaneous
  Country: DE (occurrence: DE)
  Receive Date: 20250404
  Receipt Date: 20250414
  Transmission Date: 20250717
  Serious: Yes (Other)
  Sender: MACLEODS
  Company Number: DE-MACLEODS PHARMA-MAC2025052396

PATIENT

DRUGS (1)
  1. ACYCLOVIR [Suspect]
     Active Substance: ACYCLOVIR
     Indication: Herpes zoster
     Dosage: ACICLOVIR INFUSIONS (500 MG, 3/DAY)
     Route: 065

REACTIONS (5)
  - Autonomic neuropathy [Unknown]
  - Vagus nerve disorder [Unknown]
  - Hypotension [Recovered/Resolved]
  - Sinus bradycardia [Recovered/Resolved]
  - Blood catecholamines decreased [Unknown]
